FAERS Safety Report 4334790-3 (Version None)
Quarter: 2004Q2

REPORT INFORMATION
  Report Type: 
  Country: None (occurrence: None)
  Receive Date: 20040405
  Receipt Date: 20040324
  Transmission Date: 20050107
  Serious: Yes (Life-Threatening)
  Sender: FDA-Public Use
  Company Number: MX-JNJFOC-20040305914

PATIENT
  Age: 29 Year
  Sex: Female
  Weight: 52 kg

DRUGS (3)
  1. REMICADE [Suspect]
     Indication: PSORIATIC ARTHROPATHY
     Dosage: 200 MG, INTRAVENOUS
     Route: 042
     Dates: start: 20040220
  2. REMICADE [Suspect]
     Indication: PSORIATIC ARTHROPATHY
     Dosage: 200 MG, INTRAVENOUS
     Route: 042
     Dates: start: 20040305
  3. VALDECOXIB [Concomitant]

REACTIONS (6)
  - BLOOD PRESSURE DECREASED [None]
  - BRONCHOSPASM [None]
  - DYSPNOEA [None]
  - OXYGEN SATURATION DECREASED [None]
  - SINUS TACHYCARDIA [None]
  - TREMOR [None]
